FAERS Safety Report 13042503 (Version 3)
Quarter: 2023Q2

REPORT INFORMATION
  Report Type: Report from Study
  Country: DE (occurrence: None)
  Receive Date: 20161219
  Receipt Date: 20230608
  Transmission Date: 20230721
  Serious: Yes (Hospitalization)
  Sender: FDA-Public Use
  Company Number: DE-ROCHE-1859028

PATIENT
  Age: 82 Year
  Sex: Male
  Weight: 77 kg

DRUGS (27)
  1. VENETOCLAX [Suspect]
     Active Substance: VENETOCLAX
     Indication: Chronic lymphocytic leukaemia
     Dosage: MOST RECENT DOSE ON 29/AUG/2016
     Route: 048
     Dates: start: 20150609
  2. OBINUTUZUMAB [Suspect]
     Active Substance: OBINUTUZUMAB
     Indication: Chronic lymphocytic leukaemia
     Dosage: DATE OF LAST DOSE PRIOR TO SAE 07/JUN/2015?MOST RECENT DOSE 1000 MG ON 07/JUN/2016
     Route: 042
     Dates: start: 20150511
  3. ASPIRIN [Concomitant]
     Active Substance: ASPIRIN
     Route: 048
     Dates: start: 20160716
  4. ASPIRIN [Concomitant]
     Active Substance: ASPIRIN
     Route: 048
     Dates: start: 20150716
  5. PANTOZOL [Concomitant]
     Active Substance: PANTOPRAZOLE SODIUM
     Route: 048
     Dates: start: 20150803
  6. CLOPIDOGREL [Concomitant]
     Active Substance: CLOPIDOGREL BISULFATE
     Route: 048
     Dates: start: 20150716
  7. BISOPROLOL [Concomitant]
     Active Substance: BISOPROLOL
     Route: 048
     Dates: start: 20150728
  8. EZETIMIBE [Concomitant]
     Active Substance: EZETIMIBE
     Route: 048
     Dates: start: 20150714
  9. HYDROCHLOROTHIAZIDE\VALSARTAN [Concomitant]
     Active Substance: HYDROCHLOROTHIAZIDE\VALSARTAN
     Dosage: DOSE: 160/25 UG
     Route: 048
     Dates: start: 20150714
  10. RACORVAL D [Concomitant]
     Indication: Basal cell carcinoma
     Dosage: DOSE: 1 BH
     Route: 048
     Dates: start: 2008
  11. LORAZEPAM [Concomitant]
     Active Substance: LORAZEPAM
     Route: 048
     Dates: start: 20150623
  12. DIOVAN [Concomitant]
     Active Substance: VALSARTAN
     Route: 048
     Dates: start: 20150714
  13. ASPIRIN [Concomitant]
     Active Substance: ASPIRIN
     Dates: start: 20150716
  14. POLYETHYLENE GLYCOLS [Concomitant]
     Active Substance: POLYETHYLENE GLYCOLS
     Dosage: 1 PACK?NEXT DOSE ON 2018
     Route: 048
     Dates: start: 2008
  15. CHOLECALCIFEROL [Concomitant]
     Active Substance: CHOLECALCIFEROL
     Dates: start: 20150623
  16. OXAZEPAM [Concomitant]
     Active Substance: OXAZEPAM
     Route: 048
     Dates: start: 20171026
  17. VALSARTAN [Concomitant]
     Active Substance: VALSARTAN
     Dates: start: 2018
  18. CHOLECALCIFEROL [Concomitant]
     Active Substance: CHOLECALCIFEROL
     Dosage: 1000 IE
     Dates: start: 20150628
  19. UNACID [Concomitant]
     Route: 042
     Dates: start: 20230417, end: 20230428
  20. SCOPOLAMINE [Concomitant]
     Active Substance: SCOPOLAMINE
     Dates: start: 20230419, end: 2023
  21. BOTULINUM TOXIN NOS [Concomitant]
     Active Substance: BOTULINUM TOXIN NOS
     Dosage: 100 IE
     Route: 058
     Dates: start: 20230424, end: 20230424
  22. BOTULINUM TOXIN NOS [Concomitant]
     Active Substance: BOTULINUM TOXIN NOS
     Dosage: 50 IE
     Route: 058
     Dates: start: 20230502, end: 20230502
  23. ENALAPRIL [Concomitant]
     Active Substance: ENALAPRIL
  24. ZOPICLONE [Concomitant]
     Active Substance: ZOPICLONE
  25. AMLODIPINE [Concomitant]
     Active Substance: AMLODIPINE BESYLATE
  26. EZETIMIBE [Concomitant]
     Active Substance: EZETIMIBE
  27. VITAMIN D3 [Concomitant]
     Active Substance: CHOLECALCIFEROL

REACTIONS (4)
  - Basal cell carcinoma [Recovered/Resolved]
  - Squamous cell carcinoma [Recovered/Resolved]
  - Neuroendocrine carcinoma of the skin [Recovering/Resolving]
  - Carotid artery stenosis [Recovering/Resolving]

NARRATIVE: CASE EVENT DATE: 20161121
